FAERS Safety Report 8249881-4 (Version None)
Quarter: 2012Q2

REPORT INFORMATION
  Report Type: 
  Country: None (occurrence: None)
  Receive Date: 20120402
  Receipt Date: 20120329
  Transmission Date: 20120825
  Serious: Yes (Death, Other)
  Sender: FDA-Public Use
  Company Number: PHEH2009US07737

PATIENT
  Sex: Female

DRUGS (8)
  1. KEFLEX [Concomitant]
  2. MIDAZOLAM                               /USA/ [Concomitant]
  3. XALATAN [Concomitant]
  4. CLEOCIN HYDROCHLORIDE [Concomitant]
  5. HYDROCODIN [Concomitant]
  6. LORTAB [Concomitant]
  7. FENTANYL [Concomitant]
  8. ZOMETA [Suspect]
     Dosage: QMO
     Route: 042

REACTIONS (12)
  - METASTATIC RENAL CELL CARCINOMA [None]
  - METASTASES TO BONE [None]
  - OSTEONECROSIS OF JAW [None]
  - DENTAL CARIES [None]
  - TOOTH FRACTURE [None]
  - OPEN ANGLE GLAUCOMA [None]
  - HYPERTENSION [None]
  - WEIGHT DECREASED [None]
  - TONGUE ULCERATION [None]
  - INJURY [None]
  - MASTICATION DISORDER [None]
  - EXPOSED BONE IN JAW [None]
